FAERS Safety Report 18505213 (Version 1)
Quarter: 2020Q4

REPORT INFORMATION
  Report Type: Spontaneous
  Country: JP (occurrence: JP)
  Receive Date: 20201116
  Receipt Date: 20201116
  Transmission Date: 20210114
  Serious: Yes (Death)
  Sender: FDA-Public Use
  Company Number: JP-ROCHE-2714126

PATIENT
  Age: 50 Year
  Sex: Female

DRUGS (2)
  1. TECENTRIQ [Suspect]
     Active Substance: ATEZOLIZUMAB
     Indication: BREAST CANCER
     Dosage: MOST RECENT DOSE OF ATEZOLIZUMAB WAS RECEIVED ON 04/JUN/2020.
     Route: 041
     Dates: start: 20200416
  2. PACLITAXEL. [Concomitant]
     Active Substance: PACLITAXEL
     Indication: BREAST CANCER
     Dosage: MOST RECENT DOSE OF PACLITAXEL WAS RECEIVED ON 04/JUN/2020.
     Route: 041
     Dates: start: 20200416

REACTIONS (1)
  - Death [Fatal]

NARRATIVE: CASE EVENT DATE: 20200604
